FAERS Safety Report 7689568-X (Version None)
Quarter: 2011Q3

REPORT INFORMATION
  Report Type: 
  Country: None (occurrence: None)
  Receive Date: 20110817
  Receipt Date: 20110811
  Transmission Date: 20111222
  Serious: Yes (Death, Hospitalization, Other)
  Sender: FDA-Public Use
  Company Number: US-AMGEN-USASP2011038332

PATIENT
  Age: 76 Year
  Sex: Male
  Weight: 95.646 kg

DRUGS (3)
  1. NPLATE [Suspect]
     Indication: IDIOPATHIC THROMBOCYTOPENIC PURPURA
     Dosage: 270 A?G, QWK
     Route: 058
     Dates: start: 20110203, end: 20110331
  2. CORTICOSTEROIDS [Concomitant]
     Dosage: 1 A?G/KG, UNK
  3. IVIGLOB-EX [Concomitant]
     Dosage: UNK

REACTIONS (10)
  - NON-HODGKIN'S LYMPHOMA [None]
  - PULMONARY EMBOLISM [None]
  - BRONCHOPULMONARY ASPERGILLOSIS [None]
  - CYTOMEGALOVIRUS INFECTION [None]
  - PNEUMOCYSTIS JIROVECI INFECTION [None]
  - GENERAL PHYSICAL HEALTH DETERIORATION [None]
  - RENAL FAILURE [None]
  - DEEP VEIN THROMBOSIS [None]
  - PLATELET COUNT DECREASED [None]
  - RESPIRATORY FAILURE [None]
